FAERS Safety Report 13892769 (Version 2)
Quarter: 2018Q2

REPORT INFORMATION
  Report Type: Spontaneous
  Country: US (occurrence: US)
  Receive Date: 20170822
  Receipt Date: 20180411
  Transmission Date: 20180711
  Serious: Yes (Other)
  Sender: FDA-Public Use
  Company Number: GXBR2017US002004

PATIENT
  Sex: Female
  Weight: 77 kg

DRUGS (2)
  1. CHOLESTYRAMINE FOR ORAL SUSPENSION USP [Suspect]
     Active Substance: CHOLESTYRAMINE
     Indication: DIARRHOEA
     Dosage: 6 G, TID
     Route: 048
     Dates: start: 2007
  2. CHOLESTYRAMINE FOR ORAL SUSPENSION USP [Suspect]
     Active Substance: CHOLESTYRAMINE
     Indication: COLITIS ULCERATIVE
     Dosage: 6 G, TID
     Route: 048
     Dates: start: 201703

REACTIONS (4)
  - Dyspepsia [Recovered/Resolved]
  - Colitis ulcerative [Not Recovered/Not Resolved]
  - Gastroenteritis viral [Unknown]
  - Eructation [Unknown]

NARRATIVE: CASE EVENT DATE: 2017
